FAERS Safety Report 9336648 (Version 2)
Quarter: 2013Q4

REPORT INFORMATION
  Report Type: Report from Study
  Country: RU (occurrence: RU)
  Receive Date: 20130607
  Receipt Date: 20131101
  Transmission Date: 20140711
  Serious: Yes (Life-Threatening, Hospitalization)
  Sender: FDA-Public Use
  Company Number: PHHO2013RU004073

PATIENT
  Age: 7 Year
  Sex: Male
  Weight: 23 kg

DRUGS (3)
  1. ACZ885 [Suspect]
     Indication: JUVENILE IDIOPATHIC ARTHRITIS
     Dosage: 80 MG, UNK
     Route: 058
     Dates: start: 20121023, end: 20130409
  2. MTX [Concomitant]
  3. FOLIC ACID [Concomitant]
     Dosage: 1 MG, QD

REACTIONS (3)
  - Histiocytosis haematophagic [Recovered/Resolved with Sequelae]
  - Juvenile idiopathic arthritis [Recovering/Resolving]
  - Pneumonia [Recovered/Resolved]
